FAERS Safety Report 8417174-8 (Version None)
Quarter: 2012Q2

REPORT INFORMATION
  Report Type: 
  Country: None (occurrence: None)
  Receive Date: 20120606
  Receipt Date: 20120531
  Transmission Date: 20120825
  Serious: Yes (Other)
  Sender: FDA-Public Use
  Company Number: ES-PFIZER INC-2012125394

PATIENT
  Age: 71 Year
  Sex: Female

DRUGS (8)
  1. CALCIUM SANDOZ FORTE D [Concomitant]
     Dosage: 500 MG, 2X/DAY SINCE YEARS AGO
  2. CITALOPRAM HYDROBROMIDE [Suspect]
  3. EVISTA [Concomitant]
     Dosage: 1 DF, 1X/DAY SINCE YEARS AGO
  4. ALPRAZOLAM [Suspect]
     Indication: DEPRESSION
     Dosage: 0.5 MG IN THE MORNING AND TWO TABLETS OF ALPRAZOLAM AT NIGHT
  5. NOBRITOL [Concomitant]
     Dosage: 1 DF, 1X/DAY
     Dates: start: 19910101
  6. SERTRALINE HYDROCHLORIDE [Suspect]
     Dosage: UNK
  7. ALPRAZOLAM [Suspect]
     Indication: AGORAPHOBIA
     Dosage: 0.5 MG, 2X/DAY
     Dates: start: 19910101
  8. ALPRAZOLAM [Suspect]
     Dosage: UNK

REACTIONS (16)
  - NERVOUSNESS [None]
  - ABDOMINAL DISTENSION [None]
  - ASTHENIA [None]
  - DIARRHOEA [None]
  - PARAESTHESIA [None]
  - ANXIETY [None]
  - VISION BLURRED [None]
  - VERTIGO [None]
  - DECREASED APPETITE [None]
  - PHARYNGEAL OEDEMA [None]
  - SPEECH DISORDER [None]
  - DRUG HYPERSENSITIVITY [None]
  - BLOOD PRESSURE INCREASED [None]
  - RESTLESSNESS [None]
  - FLATULENCE [None]
  - SWELLING [None]
